FAERS Safety Report 8772416 (Version 2)
Quarter: 2012Q4

REPORT INFORMATION
  Report Type: 
  Country: NL (occurrence: NL)
  Receive Date: 20120910
  Receipt Date: 20120928
  Transmission Date: 20130627
  Serious: Yes (Other)
  Sender: FDA-Public Use
  Company Number: PHHY2012NL076579

PATIENT
  Sex: Female

DRUGS (4)
  1. ZOMETA [Suspect]
     Indication: METASTASES TO BONE
     Dosage: 4mg per 100ml, once per 42 days
     Route: 042
  2. ZOMETA [Suspect]
     Dosage: 4mg per 100ml, once per 42 days
     Route: 042
     Dates: start: 20111111
  3. ZOMETA [Suspect]
     Dosage: 4mg per 100ml, once per 42 days
     Route: 042
     Dates: start: 20120725
  4. ZOMETA [Suspect]
     Dosage: 4mg per 100ml, once per 42 days
     Route: 042
     Dates: start: 20120903

REACTIONS (1)
  - Pneumothorax [Not Recovered/Not Resolved]
